FAERS Safety Report 23846005 (Version 1)
Quarter: 2024Q2

REPORT INFORMATION
  Report Type: Spontaneous
  Country: US (occurrence: US)
  Receive Date: 20240512
  Receipt Date: 20240512
  Transmission Date: 20240716
  Serious: No
  Sender: FDA-Public Use
  Company Number: US-JNJFOC-20240525969

PATIENT
  Sex: Male

DRUGS (3)
  1. RISPERDAL [Suspect]
     Active Substance: RISPERIDONE
     Indication: Hallucinations, mixed
     Dosage: VARYING DOSES OF 1 MG AND 2 MG ONCE OR TWICE DAILY
     Route: 048
  2. RISPERDAL [Suspect]
     Active Substance: RISPERIDONE
     Indication: Insomnia
  3. RISPERDAL [Suspect]
     Active Substance: RISPERIDONE
     Indication: Depressed mood

REACTIONS (2)
  - Dry mouth [Unknown]
  - Nasal congestion [Unknown]
